FAERS Safety Report 5991494-9 (Version None)
Quarter: 2008Q4

REPORT INFORMATION
  Report Type: 
  Country: None (occurrence: None)
  Receive Date: 20081211
  Receipt Date: 20081208
  Transmission Date: 20090506
  Serious: Yes (Hospitalization)
  Sender: FDA-Public Use
  Company Number: JP-ASTRAZENECA-2008AP08905

PATIENT
  Age: 24931 Day
  Sex: Male
  Weight: 46 kg

DRUGS (5)
  1. IRESSA [Suspect]
     Indication: LUNG ADENOCARCINOMA
     Route: 048
     Dates: start: 20080812, end: 20081007
  2. SPIRIVA [Concomitant]
     Indication: EMPHYSEMA
     Route: 055
     Dates: start: 20060926
  3. MUCODYNE [Concomitant]
     Indication: SPUTUM RETENTION
     Route: 048
     Dates: start: 20060926
  4. MIYA BM [Concomitant]
     Indication: DIARRHOEA
     Dosage: DOSE UNKNOWN
     Route: 048
     Dates: start: 20080812
  5. HANGE-SHASHIN-TO [Concomitant]
     Indication: DIARRHOEA
     Route: 048
     Dates: start: 20080812

REACTIONS (4)
  - DIARRHOEA [None]
  - ENTEROCOLITIS [None]
  - INTERSTITIAL LUNG DISEASE [None]
  - RASH [None]
